FAERS Safety Report 14346795 (Version 3)
Quarter: 2018Q2

REPORT INFORMATION
  Report Type: Spontaneous
  Country: US (occurrence: US)
  Receive Date: 20180103
  Receipt Date: 20180521
  Transmission Date: 20180711
  Serious: No
  Sender: FDA-Public Use
  Company Number: US-PFIZER INC-2018000484

PATIENT
  Age: 55 Year
  Sex: Male
  Weight: 97.51 kg

DRUGS (2)
  1. METHOTREXATE SODIUM. [Suspect]
     Active Substance: METHOTREXATE SODIUM
     Dosage: UNK
  2. XELJANZ XR [Suspect]
     Active Substance: TOFACITINIB CITRATE
     Indication: RHEUMATOID ARTHRITIS
     Dosage: 11 MG, ONCE DAILY
     Route: 048
     Dates: start: 201707

REACTIONS (5)
  - Dry mouth [Unknown]
  - Blood cholesterol increased [Unknown]
  - Rash [Unknown]
  - Liver function test increased [Unknown]
  - Erythema [Unknown]

NARRATIVE: CASE EVENT DATE: 201803
